FAERS Safety Report 7577808-7 (Version None)
Quarter: 2011Q2

REPORT INFORMATION
  Report Type: 
  Country: None (occurrence: None)
  Receive Date: 20110628
  Receipt Date: 20110615
  Transmission Date: 20111010
  Serious: Yes (Hospitalization, Other)
  Sender: FDA-Public Use
  Company Number: PHHY2009CA47466

PATIENT
  Sex: Male

DRUGS (22)
  1. NEXIUM [Concomitant]
     Dosage: 40 MG, QD
     Route: 048
  2. PENLAC [Concomitant]
     Dosage: UNK
  3. ATIVAN [Concomitant]
     Dosage: 1 MG
     Route: 048
  4. CRESTOR [Concomitant]
     Dosage: 20 MG, QD
     Route: 048
  5. OXAZEPAM [Concomitant]
     Dosage: 15 MG, UNK
     Route: 048
  6. PERINDOPRIL ERBUMINE [Concomitant]
     Dosage: 4 MG, QD
     Route: 048
  7. EXJADE [Suspect]
     Indication: MYELODYSPLASTIC SYNDROME
     Dosage: 1500 MG, UNK
     Route: 048
     Dates: start: 20080101
  8. EXJADE [Suspect]
     Dosage: 1000 MG, QD
     Dates: start: 20100520, end: 20101130
  9. EXJADE [Suspect]
     Dosage: 1000-1500MG
  10. EXJADE [Suspect]
     Dosage: UNK
     Route: 048
     Dates: start: 20101201, end: 20110209
  11. ATENOLOL [Concomitant]
     Dosage: 20 MG, QD
     Route: 048
  12. NORVASC [Concomitant]
     Dosage: 10 MG, QD
     Route: 048
  13. DOVOBET [Concomitant]
     Indication: PSORIASIS
     Dosage: UNK
  14. EXJADE [Suspect]
     Dosage: 1500 MG, UNK
     Route: 048
  15. ALTACE [Concomitant]
     Dosage: 10 MG, QD
     Route: 048
  16. NORVASC [Concomitant]
     Dosage: 5 MG, QD
     Route: 048
  17. ATIVAN [Concomitant]
     Dosage: 2 DF, UNK
     Route: 060
  18. ATENOLOL [Concomitant]
     Dosage: 25 MG, QD
     Route: 048
  19. CRESTOR [Concomitant]
     Dosage: 10 MG/KG, QD
     Route: 048
  20. ASPIRIN [Concomitant]
     Dosage: 81 MG, QD
     Route: 048
  21. EXJADE [Suspect]
     Dosage: 1000 MG, QD
     Route: 048
     Dates: start: 20100303
  22. DOMPERIDONE [Concomitant]
     Dosage: 10 MG 4 TIMES A DAY
     Route: 048

REACTIONS (13)
  - RASH GENERALISED [None]
  - MALAISE [None]
  - RHINORRHOEA [None]
  - ABDOMINAL DISCOMFORT [None]
  - HAEMORRHAGE [None]
  - LACRIMATION INCREASED [None]
  - PRURITUS [None]
  - ARTERIAL DISORDER [None]
  - PHARYNGITIS [None]
  - HYPERSENSITIVITY [None]
  - CHEST PAIN [None]
  - VOMITING [None]
  - EYE DISORDER [None]
